FAERS Safety Report 14297518 (Version 1)
Quarter: 2017Q4

REPORT INFORMATION
  Report Type: Report from Study
  Country: DE (occurrence: DE)
  Receive Date: 20171218
  Receipt Date: 20171218
  Transmission Date: 20180321
  Serious: Yes (Other)
  Sender: FDA-Public Use
  Company Number: DE-ASTELLAS-2017US054143

PATIENT

DRUGS (7)
  1. VINORELBINE [Suspect]
     Active Substance: VINORELBINE\VINORELBINE TARTRATE
     Indication: ADRENOCORTICAL CARCINOMA
     Dosage: UNK UNK, UNKNOWN FREQ.
     Route: 065
  2. CARMUSTINE [Suspect]
     Active Substance: CARMUSTINE
     Indication: ADRENOCORTICAL CARCINOMA
     Dosage: UNK UNK, UNKNOWN FREQ.
     Route: 065
  3. MITOTANE [Suspect]
     Active Substance: MITOTANE
     Indication: ADRENOCORTICAL CARCINOMA
     Dosage: UNK UNK, UNKNOWN FREQ.
     Route: 065
  4. ERLOTINIB [Suspect]
     Active Substance: ERLOTINIB
     Indication: ADRENOCORTICAL CARCINOMA
     Route: 048
  5. GEMCITABINE [Suspect]
     Active Substance: GEMCITABINE\GEMCITABINE HYDROCHLORIDE
     Indication: ADRENOCORTICAL CARCINOMA
     Dosage: 800 MG/M2, OTHER (ON DAYS 1 AND 8, REPEATEDLY ADMINISTERED IN 21-DAY CYCLES, AS AN INFUSION OVER 30)
     Route: 042
  6. 5-FLUOROURACIL                     /00098801/ [Suspect]
     Active Substance: FLUOROURACIL
     Indication: ADRENOCORTICAL CARCINOMA
     Dosage: UNK, UNKNOWN FREQ.
     Route: 065
  7. CAPECITABINE. [Suspect]
     Active Substance: CAPECITABINE
     Indication: ADRENOCORTICAL CARCINOMA
     Route: 048

REACTIONS (21)
  - Thrombocytopenia [Unknown]
  - Hypoaesthesia [Unknown]
  - Asthenia [Unknown]
  - Anaemia [Unknown]
  - Vomiting [Unknown]
  - Paraesthesia [Unknown]
  - Diarrhoea [Unknown]
  - Pain [Unknown]
  - Constipation [Unknown]
  - Pyrexia [Unknown]
  - Decreased appetite [Unknown]
  - Headache [Unknown]
  - Palmar-plantar erythrodysaesthesia syndrome [Unknown]
  - Abdominal pain [Unknown]
  - Oedema [Unknown]
  - Mucosal inflammation [Unknown]
  - Chest pain [Unknown]
  - Dyspnoea [Unknown]
  - Neutropenia [Unknown]
  - Nausea [Unknown]
  - Polyneuropathy [Unknown]
